FAERS Safety Report 10146185 (Version 3)
Quarter: 2014Q2

REPORT INFORMATION
  Report Type: Report from Study
  Country: CA (occurrence: CA)
  Receive Date: 20140501
  Receipt Date: 20140609
  Transmission Date: 20141212
  Serious: Yes (Hospitalization)
  Sender: FDA-Public Use
  Company Number: CA-NOVOPROD-403666

PATIENT
  Age: 73 Year
  Sex: Male
  Weight: 129.5 kg

DRUGS (3)
  1. LIRAGLUTIDE FLEXPEN [Suspect]
     Indication: OBESITY
     Dosage: 0.6 MG, QD
     Route: 058
     Dates: start: 20111025
  2. LIRAGLUTIDE FLEXPEN [Suspect]
     Dosage: 3.0 MG, QD
     Route: 058
     Dates: start: 20111122
  3. IBUPROFEN [Concomitant]
     Indication: PROPHYLAXIS
     Dosage: 1 (ACTUAL DOSE SUBJECT TAKES IS UNKNOWN),QD,PRN
     Dates: start: 2000

REACTIONS (1)
  - Gastric ulcer haemorrhage [Recovered/Resolved]
